FAERS Safety Report 4597477-8 (Version None)
Quarter: 2005Q1

REPORT INFORMATION
  Report Type: 
  Country: None (occurrence: None)
  Receive Date: 20050303
  Receipt Date: 20030827
  Transmission Date: 20050727
  Serious: Yes (Hospitalization)
  Sender: FDA-Public Use
  Company Number: DE-ROCHE-345836

PATIENT
  Age: 65 Year
  Sex: Male
  Weight: 72 kg

DRUGS (8)
  1. DACLIZUMAB [Suspect]
     Route: 042
     Dates: start: 20030804, end: 20030804
  2. DACLIZUMAB [Suspect]
     Route: 042
  3. MYCOPHENOLATE MOFETIL [Suspect]
     Route: 048
     Dates: start: 20030804
  4. SIROLIMUS [Suspect]
     Route: 048
     Dates: start: 20030819
  5. CORTICOSTEROIDS [Suspect]
     Route: 065
  6. LISINOPRIL [Concomitant]
     Route: 048
     Dates: start: 20030808
  7. FELODIPINE [Concomitant]
     Route: 048
     Dates: start: 20030812
  8. FUROSEMIDE [Concomitant]
     Route: 048
     Dates: start: 20030820

REACTIONS (3)
  - CULTURE URINE POSITIVE [None]
  - PSEUDOMONAS INFECTION [None]
  - URINARY TRACT INFECTION [None]
